FAERS Safety Report 6102273-6 (Version None)
Quarter: 2009Q1

REPORT INFORMATION
  Report Type: 
  Country: None (occurrence: None)
  Receive Date: 20090304
  Receipt Date: 20090220
  Transmission Date: 20090719
  Serious: Yes (Other)
  Sender: FDA-Public Use
  Company Number: US-PFIZER INC-2009177333

PATIENT
  Sex: Female
  Weight: 58.957 kg

DRUGS (7)
  1. CHANTIX [Suspect]
     Indication: SMOKING CESSATION THERAPY
     Dosage: 0.5 MG, UNK
     Dates: start: 20090201, end: 20090201
  2. THYROID [Concomitant]
     Indication: THYROID DISORDER
     Dosage: UNK
  3. ABILIFY [Concomitant]
     Dosage: UNK
  4. MS CONTIN [Concomitant]
     Dosage: UNK
  5. PERCOCET [Concomitant]
     Dosage: UNK
  6. SKELAXIN [Concomitant]
     Dosage: UNK
  7. CORTICOSTEROIDS [Concomitant]
     Indication: PAIN
     Dosage: UNK

REACTIONS (13)
  - ABNORMAL DREAMS [None]
  - AGITATION [None]
  - ANGER [None]
  - BLOOD CHOLESTEROL INCREASED [None]
  - DAYDREAMING [None]
  - FEELING ABNORMAL [None]
  - INSOMNIA [None]
  - IRRITABILITY [None]
  - MEMORY IMPAIRMENT [None]
  - MENTAL DISORDER [None]
  - MOLE EXCISION [None]
  - SELF-INJURIOUS IDEATION [None]
  - THINKING ABNORMAL [None]
